FAERS Safety Report 8616283-8 (Version None)
Quarter: 2012Q3

REPORT INFORMATION
  Report Type: 
  Country: None (occurrence: None)
  Receive Date: 20120823
  Receipt Date: 20120816
  Transmission Date: 20120928
  Serious: Yes (Hospitalization)
  Sender: FDA-Public Use
  Company Number: DK-NAPPMUNDI-GBR-2012-0011309

PATIENT
  Sex: Female

DRUGS (7)
  1. PANTOPRAZOLE SODIUM [Concomitant]
  2. MORPHINE SULFATE [Suspect]
     Indication: PAIN
     Dosage: UNK
     Route: 065
     Dates: end: 20120725
  3. DIGOXIN [Concomitant]
  4. HJERTEMAGNYL                       /00228701/ [Concomitant]
  5. POTASSIUM CHLORIDE [Concomitant]
  6. PRADAXA [Suspect]
     Indication: ATRIAL FIBRILLATION
     Dosage: 110 MG, BID
     Route: 065
     Dates: start: 20120713, end: 20120725
  7. DIURAL                             /00016901/ [Concomitant]

REACTIONS (3)
  - MYOCLONUS [None]
  - ENCEPHALOPATHY [None]
  - INTERNATIONAL NORMALISED RATIO INCREASED [None]
